FAERS Safety Report 16278972 (Version 1)
Quarter: 2019Q2

REPORT INFORMATION
  Report Type: Spontaneous
  Country: NL (occurrence: NL)
  Receive Date: 20190506
  Receipt Date: 20190506
  Transmission Date: 20190711
  Serious: Yes (Hospitalization)
  Sender: FDA-Public Use
  Company Number: NL-ALLERGAN-1918925US

PATIENT
  Sex: Female
  Weight: 79 kg

DRUGS (1)
  1. FOSFOMYCIN TROMETHAMINE - BP [Suspect]
     Active Substance: FOSFOMYCIN TROMETHAMINE
     Indication: CYSTITIS BACTERIAL
     Dosage: 3000 MG, EVERY 3 DAYS
     Route: 050
     Dates: start: 20190321, end: 20190325

REACTIONS (4)
  - Vomiting [Recovering/Resolving]
  - Overdose [Recovering/Resolving]
  - Muscular weakness [Recovering/Resolving]
  - Dizziness [Recovering/Resolving]

NARRATIVE: CASE EVENT DATE: 20190325
